FAERS Safety Report 23496207 (Version 1)
Quarter: 2024Q1

REPORT INFORMATION
  Report Type: Spontaneous
  Country: US (occurrence: None)
  Receive Date: 20240207
  Receipt Date: 20240207
  Transmission Date: 20240410
  Serious: No
  Sender: FDA-Public Use
  Company Number: US-ROCHE-3355178

PATIENT
  Age: 65 Year
  Sex: Male

DRUGS (3)
  1. XOLAIR [Suspect]
     Active Substance: OMALIZUMAB
     Indication: Asthma
     Route: 065
  2. DUPIXENT [Suspect]
     Active Substance: DUPILUMAB
     Indication: Asthma
     Dosage: STRENGTH: 300 MG/2 ML, LOADING DOSE OF 600 MG 1X,
     Route: 058
     Dates: start: 20220413
  3. DUPIXENT [Suspect]
     Active Substance: DUPILUMAB
     Dosage: STRENGTH: 300 MG/2 ML, FOLLOWED BY MAINTENANCE DOSE OF 300 MG QOW
     Route: 058
     Dates: start: 20220520

REACTIONS (3)
  - Chondrocalcinosis [Not Recovered/Not Resolved]
  - Mucous stools [Not Recovered/Not Resolved]
  - Diarrhoea [Unknown]

NARRATIVE: CASE EVENT DATE: 20230101
